FAERS Safety Report 10156802 (Version 2)
Quarter: 2014Q2

REPORT INFORMATION
  Report Type: Spontaneous
  Country: US (occurrence: US)
  Receive Date: 20140507
  Receipt Date: 20140507
  Transmission Date: 20141212
  Serious: Yes (Other)
  Sender: FDA-Public Use
  Company Number: US-JNJFOC-20140211826

PATIENT
  Sex: Male
  Weight: 90.72 kg

DRUGS (6)
  1. DURAGESIC [Suspect]
     Indication: SPINAL PAIN
     Route: 062
     Dates: start: 201312
  2. DURAGESIC [Suspect]
     Indication: SPINAL PAIN
     Route: 062
     Dates: start: 2010, end: 201312
  3. DURAGESIC [Suspect]
     Indication: PAIN
     Route: 062
     Dates: start: 201312
  4. DURAGESIC [Suspect]
     Indication: PAIN
     Route: 062
     Dates: start: 2010, end: 201312
  5. MS CONTIN [Concomitant]
     Indication: PAIN
     Route: 048
     Dates: start: 2011
  6. DILAUDID [Concomitant]
     Indication: PAIN
     Route: 048
     Dates: start: 2011

REACTIONS (11)
  - Drug withdrawal syndrome [Not Recovered/Not Resolved]
  - Exostosis [Unknown]
  - Intervertebral disc degeneration [Unknown]
  - Spondylitis [Unknown]
  - Nerve compression [Unknown]
  - Intervertebral disc protrusion [Unknown]
  - Adverse event [Unknown]
  - Drug dose omission [Unknown]
  - Device malfunction [Unknown]
  - Product quality issue [Unknown]
  - Product adhesion issue [Unknown]
